FAERS Safety Report 10288324 (Version 1)
Quarter: 2014Q3

REPORT INFORMATION
  Report Type: Spontaneous
  Country: US (occurrence: US)
  Receive Date: 20140709
  Receipt Date: 20140709
  Transmission Date: 20150326
  Serious: Yes (Hospitalization)
  Sender: FDA-Public Use
  Company Number: US-SA-2014SA085274

PATIENT
  Sex: Male

DRUGS (3)
  1. AUBAGIO [Suspect]
     Active Substance: TERIFLUNOMIDE
     Indication: PRODUCT USED FOR UNKNOWN INDICATION
     Route: 065
  2. TYSABRI [Concomitant]
     Active Substance: NATALIZUMAB
     Route: 042
     Dates: start: 20091120
  3. HYOSCYAMINE [Concomitant]
     Active Substance: HYOSCYAMINE

REACTIONS (1)
  - Investigation [Unknown]
